FAERS Safety Report 13054491 (Version 2)
Quarter: 2017Q1

REPORT INFORMATION
  Report Type: Spontaneous
  Country: US (occurrence: US)
  Receive Date: 20161222
  Receipt Date: 20170322
  Transmission Date: 20170428
  Serious: Yes (Hospitalization, Other)
  Sender: FDA-Public Use
  Company Number: US-BAYER-2016-238803

PATIENT
  Age: 44 Year
  Sex: Female

DRUGS (8)
  1. MIRENA [Suspect]
     Active Substance: LEVONORGESTREL
     Dosage: 20 MCG/24HR, CONT
     Route: 015
     Dates: start: 2013
  2. RELISTOR [Concomitant]
     Active Substance: METHYLNALTREXONE BROMIDE
  3. KLONOPIN [Concomitant]
     Active Substance: CLONAZEPAM
     Dosage: 05 MG, UNK
     Route: 048
  4. CALCIUM CARBONATE [CALCIUM CARBONATE] [Concomitant]
     Dosage: 500 MG, UNK
     Route: 048
  5. DILAUDID [Concomitant]
     Active Substance: HYDROMORPHONE HYDROCHLORIDE
     Dosage: 4 MG, UNK
     Route: 048
  6. DITROPAN [Concomitant]
     Active Substance: OXYBUTYNIN CHLORIDE
  7. HYDROMORPHONE HCL [Concomitant]
     Active Substance: HYDROMORPHONE HYDROCHLORIDE
     Dosage: 4 MG, UNK
     Route: 048
  8. MARINOL [Concomitant]
     Active Substance: DRONABINOL

REACTIONS (23)
  - Diabetes insipidus [None]
  - Atelectasis [None]
  - Muscle spasms [None]
  - Deep vein thrombosis [None]
  - Fatigue [None]
  - Abdominal pain [None]
  - Uterine leiomyoma [None]
  - Hepatic lesion [None]
  - Ovarian cyst [None]
  - Pericardial effusion [None]
  - Pulmonary embolism [Not Recovered/Not Resolved]
  - Joint effusion [None]
  - Generalised oedema [None]
  - Constipation [None]
  - Cholelithiasis [None]
  - Asthenia [None]
  - Arthralgia [None]
  - Anaemia [None]
  - Pleural effusion [None]
  - Hepatic congestion [None]
  - Malaise [None]
  - Troponin increased [Not Recovered/Not Resolved]
  - Fatigue [Not Recovered/Not Resolved]

NARRATIVE: CASE EVENT DATE: 201612
